FAERS Safety Report 5600170-3 (Version None)
Quarter: 2008Q1

REPORT INFORMATION
  Report Type: 
  Country: None (occurrence: None)
  Receive Date: 20080117
  Receipt Date: 20080117
  Transmission Date: 20080703
  Serious: Yes (Hospitalization)
  Sender: FDA-Public Use
  Company Number: None

PATIENT
  Age: 58 Year
  Sex: Male
  Weight: 80.74 kg

DRUGS (1)
  1. DICLOXACILLIN [Suspect]
     Indication: CELLULITIS
     Dosage: 250MG QID PO
     Route: 048
     Dates: start: 20071116, end: 20071119

REACTIONS (4)
  - ASTHENIA [None]
  - DISCOMFORT [None]
  - PHARYNGOLARYNGEAL PAIN [None]
  - RHINORRHOEA [None]
